FAERS Safety Report 7216657-6 (Version None)
Quarter: 2011Q1

REPORT INFORMATION
  Report Type: 
  Country: None (occurrence: None)
  Receive Date: 20110110
  Receipt Date: 20101229
  Transmission Date: 20110831
  Serious: No
  Sender: FDA-Public Use
  Company Number: US-BIOGENIDEC-2011BI000242

PATIENT
  Age: 66 Year
  Sex: Female

DRUGS (2)
  1. TYSABRI [Suspect]
     Indication: MULTIPLE SCLEROSIS
     Route: 042
     Dates: start: 20091218
  2. TYSABRI [Suspect]
     Route: 042
     Dates: start: 20081013, end: 20090414

REACTIONS (2)
  - BALANCE DISORDER [None]
  - MULTIPLE SCLEROSIS RELAPSE [None]
